FAERS Safety Report 5279025-2 (Version None)
Quarter: 2007Q1

REPORT INFORMATION
  Report Type: 
  Country: None (occurrence: None)
  Receive Date: 20070328
  Receipt Date: 20061215
  Transmission Date: 20070707
  Serious: No
  Sender: FDA-Public Use
  Company Number: US-AMGEN-US203851

PATIENT
  Sex: Female
  Weight: 64.4 kg

DRUGS (22)
  1. NEULASTA [Suspect]
     Indication: CHEMOTHERAPY
     Route: 058
     Dates: start: 20061122, end: 20061122
  2. HOMEOPATHIC PREPARATION [Suspect]
     Route: 065
  3. DILANTIN [Concomitant]
     Route: 065
  4. PHENOBARBITAL TAB [Concomitant]
     Route: 065
  5. ZOCOR [Concomitant]
     Route: 065
  6. SINGULAIR [Concomitant]
     Route: 065
  7. PREVACID [Concomitant]
     Route: 065
  8. VITAMIN CAP [Concomitant]
     Route: 065
  9. VITAMIN B COMPLEX CAP [Concomitant]
     Route: 060
  10. ESTER-C [Concomitant]
     Route: 065
  11. VITAMIN E [Concomitant]
     Route: 065
  12. CHRONDROITAN + GLUCOSAMINE [Concomitant]
     Route: 065
  13. MSM [Concomitant]
     Route: 065
  14. VITAMIN B6 [Concomitant]
     Route: 065
  15. UNSPECIFIED HERBAL PRODUCT [Concomitant]
     Route: 065
  16. TAXOL [Concomitant]
     Route: 065
     Dates: start: 20061003
  17. CARBOPLATIN [Concomitant]
     Route: 065
     Dates: start: 20061003
  18. ATIVAN [Concomitant]
     Route: 065
  19. NASONEX [Concomitant]
     Route: 065
  20. MIRALAX [Concomitant]
     Route: 065
  21. COMPAZINE [Concomitant]
     Route: 065
  22. OCUVITE [Concomitant]
     Route: 065

REACTIONS (10)
  - BONE PAIN [None]
  - BRONCHIAL IRRITATION [None]
  - DIZZINESS [None]
  - DYSPHONIA [None]
  - DYSPNOEA [None]
  - GRAND MAL CONVULSION [None]
  - LYMPHADENOPATHY [None]
  - MYALGIA [None]
  - NIGHT SWEATS [None]
  - PYREXIA [None]
